FAERS Safety Report 14710815 (Version 1)
Quarter: 2018Q2

REPORT INFORMATION
  Report Type: Spontaneous
  Country: US (occurrence: US)
  Receive Date: 20180403
  Receipt Date: 20180403
  Transmission Date: 20180711
  Serious: No
  Sender: FDA-Public Use
  Company Number: US-ROCHE-2005447

PATIENT
  Sex: Male

DRUGS (1)
  1. COTELLIC [Suspect]
     Active Substance: COBIMETINIB
     Indication: COLON CANCER
     Route: 065
     Dates: start: 20170710, end: 201709

REACTIONS (3)
  - Off label use [Unknown]
  - Drug interaction [Unknown]
  - Intentional product use issue [Unknown]
